FAERS Safety Report 14111361 (Version 1)
Quarter: 2017Q4

REPORT INFORMATION
  Report Type: Spontaneous
  Country: GB (occurrence: GB)
  Receive Date: 20171020
  Receipt Date: 20171020
  Transmission Date: 20180321
  Serious: Yes (Other)
  Sender: FDA-Public Use
  Company Number: GB-MYLANLABS-2017M1065277

PATIENT
  Age: 62 Year
  Sex: Male
  Weight: 90 kg

DRUGS (27)
  1. GABAPENTIN. [Suspect]
     Active Substance: GABAPENTIN
     Indication: BACK PAIN
     Dates: start: 20170915
  2. CARBOMER [Concomitant]
     Active Substance: CARBOMER
     Dates: start: 20170314
  3. FLUTICASONE FUROATE [Concomitant]
     Active Substance: FLUTICASONE FUROATE
     Dosage: EACH NOSTRIL.
     Route: 045
     Dates: start: 20170314
  4. LOSARTAN. [Concomitant]
     Active Substance: LOSARTAN
     Dates: start: 20170314
  5. THEOPHYLLINE [Concomitant]
     Active Substance: THEOPHYLLINE ANHYDROUS
     Dosage: TAKE ONE EVERY MORNING AND TWO EVERY EVENING.
     Dates: start: 20170314
  6. ACENOCOUMAROL [Concomitant]
     Active Substance: ACENOCOUMAROL
     Dosage: TAKE AS PER WAFARIN CLINIC.
     Dates: start: 20170314
  7. INDAPAMIDE. [Concomitant]
     Active Substance: INDAPAMIDE
     Dosage: EACH MORNING.
     Dates: start: 20170314
  8. IPRATROPIUM BROMIDE. [Concomitant]
     Active Substance: IPRATROPIUM BROMIDE
     Route: 055
     Dates: start: 20170314
  9. MONTELUKAST [Concomitant]
     Active Substance: MONTELUKAST SODIUM
     Dosage: NIGHT AS PER HOSPITAL.
     Dates: start: 20170314
  10. ZEROCREAM [Concomitant]
     Dosage: TO BE APPLIED TWICE A DAY.
     Dates: start: 20160211
  11. CETIRIZINE [Concomitant]
     Active Substance: CETIRIZINE HYDROCHLORIDE
     Dosage: EVERY DAY.
     Dates: start: 20170314
  12. ADCAL [Concomitant]
     Active Substance: CALCIUM CARBONATE
     Dosage: AS PER ENDOCRINOLOGY.
     Dates: start: 20170314
  13. ATORVASTATIN [Concomitant]
     Active Substance: ATORVASTATIN
     Dates: start: 20170314
  14. SYMBICORT [Concomitant]
     Active Substance: BUDESONIDE\FORMOTEROL FUMARATE DIHYDRATE
     Route: 055
     Dates: start: 20170314
  15. BRINZOLAMIDE [Concomitant]
     Active Substance: BRINZOLAMIDE
     Dates: start: 20170314
  16. HYLO-FORTE [Concomitant]
     Active Substance: HYALURONATE SODIUM
     Dosage: APPLY.
     Dates: start: 20170314
  17. MONOPOST [Concomitant]
     Dosage: USE AS DIRECTED BY THE EYE TEAM.
     Dates: start: 20170704
  18. QUININE [Concomitant]
     Active Substance: QUININE
     Dosage: EVERY NIGHT.
     Dates: start: 20170314
  19. SALBUTAMOL [Concomitant]
     Active Substance: ALBUTEROL
     Route: 055
     Dates: start: 20170314
  20. TRAMADOL. [Concomitant]
     Active Substance: TRAMADOL
     Dosage: TAKE ONE TO TWO CAPSULES  FOUR TIMES DAILY AS R...
     Dates: start: 20170314
  21. CYCLIZINE [Concomitant]
     Active Substance: CYCLIZINE
     Indication: NAUSEA
     Dates: start: 20170314
  22. HYOSCINE BUTYLBROMIDE [Concomitant]
     Active Substance: BUTYLSCOPOLAMINE
     Dosage: TAKE ONE-TWO 4 TIMES/DAY.
     Dates: start: 20170314
  23. PANTOPRAZOLE [Concomitant]
     Active Substance: PANTOPRAZOLE
     Dates: start: 20170314
  24. MUCODYNE [Concomitant]
     Active Substance: CARBOCYSTEINE
     Dates: start: 20170314
  25. PREDNISOLONE. [Concomitant]
     Active Substance: PREDNISOLONE
     Dosage: MORNING AS PER HOSPITAL.
     Dates: start: 20170314
  26. PREGABALIN. [Concomitant]
     Active Substance: PREGABALIN
     Dates: start: 20170919
  27. AZITHROMYCIN ANHYDROUS. [Concomitant]
     Active Substance: AZITHROMYCIN ANHYDROUS
     Dosage: OR AS DIRECTED.
     Dates: start: 20170314

REACTIONS (1)
  - Wheezing [Recovered/Resolved]

NARRATIVE: CASE EVENT DATE: 20170915
